FAERS Safety Report 9378916 (Version 1)
Quarter: 2013Q1

REPORT INFORMATION
  Report Type: Spontaneous
  Country: AT (occurrence: None)
  Receive Date: 20121109
  Receipt Date: 20121109
  Transmission Date: 20140127
  Serious: Yes (Death)
  Sender: FDA-Public Use
  Company Number: 2012S1000015

PATIENT
  Age: 69 Year
  Sex: Female
  Weight: 65 kg

DRUGS (1)
  1. CUBICIN (DAPTOMYCIN) [Suspect]
     Indication: ENTEROCOCCAL INFECTION
     Route: 042
     Dates: start: 20100408, end: 20100409

REACTIONS (3)
  - Wound infection [None]
  - Renal failure [None]
  - General physical health deterioration [None]
